FAERS Safety Report 9927894 (Version 1)
Quarter: 2014Q1

REPORT INFORMATION
  Report Type: Spontaneous
  Country: US (occurrence: US)
  Receive Date: 20140227
  Receipt Date: 20140227
  Transmission Date: 20141002
  Serious: No
  Sender: FDA-Public Use
  Company Number: US-PFIZER INC-2014057417

PATIENT
  Age: 74 Year
  Sex: Male
  Weight: 77.1 kg

DRUGS (1)
  1. LYRICA [Suspect]
     Indication: NEURALGIA
     Dosage: 50 MG, 2X/DAY
     Route: 048
     Dates: start: 201402

REACTIONS (1)
  - Headache [Not Recovered/Not Resolved]
